FAERS Safety Report 23524214 (Version 1)
Quarter: 2024Q1

REPORT INFORMATION
  Report Type: Spontaneous
  Country: IT (occurrence: IT)
  Receive Date: 20240214
  Receipt Date: 20240214
  Transmission Date: 20240410
  Serious: Yes (Other)
  Sender: FDA-Public Use
  Company Number: IT-Eisai-EC-2024-159261

PATIENT
  Age: 24 Year
  Sex: Female

DRUGS (4)
  1. PERAMPANEL [Suspect]
     Active Substance: PERAMPANEL
     Indication: Epilepsy
     Route: 048
  2. VALPROATE [Concomitant]
     Active Substance: VALPROIC ACID
     Indication: Product used for unknown indication
  3. TOPIRAMATE [Concomitant]
     Active Substance: TOPIRAMATE
     Indication: Product used for unknown indication
  4. CLONAZEPAM [Concomitant]
     Active Substance: CLONAZEPAM
     Indication: Product used for unknown indication

REACTIONS (1)
  - Psychotic disorder [Recovered/Resolved]
